FAERS Safety Report 9820008 (Version 1)
Quarter: 2013Q3

REPORT INFORMATION
  Report Type: Spontaneous
  Country: US (occurrence: None)
  Receive Date: 20130924
  Receipt Date: 20130924
  Transmission Date: 20140515
  Serious: Yes (Other)
  Sender: FDA-Public Use
  Company Number: 2013000234

PATIENT
  Age: 37 Year
  Sex: Female
  Weight: 135 kg

DRUGS (9)
  1. OSPHENA [Suspect]
     Indication: DYSPAREUNIA
     Route: 048
     Dates: start: 201308, end: 201308
  2. IMITREX (SUMATRIPTAN) [Concomitant]
  3. LEVOTHYROXINE SODIUM (LEVOTHYROXINE SODIUM) [Concomitant]
  4. XANAX (ALPRAZOLAM) [Concomitant]
  5. PERCOCET [Concomitant]
  6. OXYCODONE AND ACETAMINOPHEN (OXYCODONE HYDROCHLORIDE, PARACETAMOL) [Concomitant]
  7. ELMIRON (PENTOSAN POLYSULFATE SODIUM) [Concomitant]
  8. LISINOPRIL (LISINOPRIL) [Concomitant]
  9. DELESTROGEN (ESTRADIOL VALERATE) [Concomitant]

REACTIONS (1)
  - Confusional state [None]
